FAERS Safety Report 8888875 (Version 1)
Quarter: 2012Q4

REPORT INFORMATION
  Report Type: 
  Country: US (occurrence: US)
  Receive Date: 20121106
  Receipt Date: 20121106
  Transmission Date: 20130627
  Serious: Yes (Other)
  Sender: FDA-Public Use
  Company Number: US-009507513-1211USA000725

PATIENT
  Age: 56 Year
  Sex: Female

DRUGS (1)
  1. FOSAMAX [Suspect]
     Indication: OSTEOPOROSIS
     Dosage: UNK, qm
     Route: 048
     Dates: start: 2009

REACTIONS (1)
  - Gastrooesophageal reflux disease [Not Recovered/Not Resolved]
